FAERS Safety Report 10553393 (Version 1)
Quarter: 2014Q4

REPORT INFORMATION
  Report Type: Spontaneous
  Country: AU (occurrence: AU)
  Receive Date: 20141030
  Receipt Date: 20141030
  Transmission Date: 20150529
  Serious: Yes (Other)
  Sender: FDA-Public Use
  Company Number: AU-009507513-1410AUS011182

PATIENT
  Age: 57 Year
  Sex: Male

DRUGS (6)
  1. RIBAVIRIN. [Suspect]
     Active Substance: RIBAVIRIN
     Dosage: 600 MG, DAILY
     Route: 048
     Dates: start: 20131004, end: 20140801
  2. INTERFERON ALFA-2B [Suspect]
     Active Substance: INTERFERON ALFA-2B
     Dosage: 180 MICROGRAM, WEEKLY
     Dates: start: 20131004, end: 20140801
  3. ASENAPINE MALEATE [Concomitant]
     Active Substance: ASENAPINE MALEATE
  4. LOVAN [Concomitant]
     Active Substance: FLUOXETINE HYDROCHLORIDE
  5. PHYSEPTONE [Concomitant]
  6. BOCEPREVIR [Suspect]
     Active Substance: BOCEPREVIR
     Dosage: 2400 MG, DAILY
     Route: 048

REACTIONS (3)
  - Asthenia [Not Recovered/Not Resolved]
  - Weight decreased [Not Recovered/Not Resolved]
  - Affective disorder [Not Recovered/Not Resolved]

NARRATIVE: CASE EVENT DATE: 20131004
